FAERS Safety Report 22586188 (Version 1)
Quarter: 2023Q2

REPORT INFORMATION
  Report Type: Report from Study
  Country: RO (occurrence: RO)
  Receive Date: 20230610
  Receipt Date: 20230610
  Transmission Date: 20230721
  Serious: Yes (Death, Life-Threatening, Hospitalization, Other)
  Sender: FDA-Public Use
  Company Number: RO-SUN PHARMACEUTICAL INDUSTRIES LTD-2023R1-394096

PATIENT
  Age: 56 Year
  Sex: Female

DRUGS (4)
  1. DEXAMETHASONE [Suspect]
     Active Substance: DEXAMETHASONE
     Indication: Immunosuppression
     Dosage: UNK
     Route: 065
  2. MYCOPHENOLIC ACID [Suspect]
     Active Substance: MYCOPHENOLIC ACID
     Indication: Immunosuppression
     Dosage: UNK
     Route: 065
  3. TACROLIMUS [Suspect]
     Active Substance: TACROLIMUS
     Indication: Immunosuppression
     Dosage: UNK
     Route: 065
  4. TOCILIZUMAB [Suspect]
     Active Substance: TOCILIZUMAB
     Indication: Immunosuppression
     Dosage: UNK
     Route: 065

REACTIONS (2)
  - COVID-19 [Fatal]
  - Acute kidney injury [Unknown]
